FAERS Safety Report 8988115 (Version 7)
Quarter: 2013Q3

REPORT INFORMATION
  Report Type: Spontaneous
  Country: FR (occurrence: FR)
  Receive Date: 20121227
  Receipt Date: 20130910
  Transmission Date: 20140515
  Serious: Yes (Other)
  Sender: FDA-Public Use
  Company Number: FR-JNJFOC-20121211876

PATIENT
  Age: 76 Year
  Sex: Male
  Weight: 68 kg

DRUGS (5)
  1. PREZISTA [Suspect]
     Indication: HIV INFECTION
     Dosage: DAILY DOSE: 1200 DF ONCE A DAY
     Route: 048
     Dates: start: 20121201, end: 20121211
  2. NORVIR [Suspect]
     Indication: HIV INFECTION
     Route: 065
     Dates: start: 20121201, end: 20121211
  3. TRUVADA [Suspect]
     Indication: HIV INFECTION
     Route: 065
     Dates: start: 20121201, end: 20121211
  4. EFAVIRENZ [Suspect]
     Indication: HIV INFECTION
     Route: 065
  5. BACTRIM [Concomitant]
     Indication: OPPORTUNISTIC INFECTION PROPHYLAXIS
     Route: 048
     Dates: start: 20121101

REACTIONS (2)
  - Drug reaction with eosinophilia and systemic symptoms [Recovered/Resolved]
  - Rash [Unknown]
